FAERS Safety Report 9390734 (Version 1)
Quarter: 2013Q3

REPORT INFORMATION
  Report Type: Spontaneous
  Country: US (occurrence: US)
  Receive Date: 20130709
  Receipt Date: 20130709
  Transmission Date: 20140515
  Serious: No
  Sender: FDA-Public Use
  Company Number: US-009507513-1307USA000936

PATIENT
  Sex: Female

DRUGS (5)
  1. CLARINEX [Suspect]
     Indication: HYPERSENSITIVITY
     Dosage: ONCE EVERY 12 HOURS
     Route: 048
     Dates: start: 2011, end: 2011
  2. CLARINEX-D-12 [Suspect]
     Dosage: 12-HOUR
     Dates: end: 2011
  3. CLARINEX-D-12 [Suspect]
     Dosage: 12-HOUR
     Dates: start: 2011, end: 201306
  4. CLARITIN [Suspect]
     Route: 048
  5. SUDAFED [Suspect]
     Dosage: UNK
     Dates: start: 2011

REACTIONS (16)
  - Hypokinesia [Not Recovered/Not Resolved]
  - Feeling abnormal [Recovered/Resolved]
  - Peripheral nerve injury [Not Recovered/Not Resolved]
  - Migraine [Not Recovered/Not Resolved]
  - Dyspnoea [Not Recovered/Not Resolved]
  - Eye swelling [Not Recovered/Not Resolved]
  - Swelling face [Not Recovered/Not Resolved]
  - Anger [Not Recovered/Not Resolved]
  - Frustration [Not Recovered/Not Resolved]
  - Feeling of despair [Not Recovered/Not Resolved]
  - Feeling abnormal [Not Recovered/Not Resolved]
  - Pain [Not Recovered/Not Resolved]
  - Apparent death [Not Recovered/Not Resolved]
  - Fatigue [Not Recovered/Not Resolved]
  - Drug ineffective [Unknown]
  - Drug dose omission [Unknown]
